FAERS Safety Report 18715072 (Version 1)
Quarter: 2021Q1

REPORT INFORMATION
  Report Type: Spontaneous
  Country: US (occurrence: US)
  Receive Date: 20210108
  Receipt Date: 20210108
  Transmission Date: 20210419
  Serious: No
  Sender: FDA-Public Use
  Company Number: US-HANGZHOU MINSHENG BINJIANG PHARMACEUTICAL CO., LTD.-2104097

PATIENT
  Age: 70 Year
  Sex: Female

DRUGS (1)
  1. ALENDRONATE SODIUM. [Suspect]
     Active Substance: ALENDRONATE SODIUM

REACTIONS (1)
  - Dyspepsia [Unknown]
